FAERS Safety Report 16432348 (Version 2)
Quarter: 2019Q3

REPORT INFORMATION
  Report Type: Spontaneous
  Country: US (occurrence: US)
  Receive Date: 20190614
  Receipt Date: 20190701
  Transmission Date: 20191004
  Serious: No
  Sender: FDA-Public Use
  Company Number: US-JNJFOC-20190541360

PATIENT
  Sex: Male

DRUGS (1)
  1. RISPERDAL [Suspect]
     Active Substance: RISPERIDONE
     Indication: ATTENTION DEFICIT/HYPERACTIVITY DISORDER
     Route: 048

REACTIONS (6)
  - Gynaecomastia [Not Recovered/Not Resolved]
  - Weight increased [Unknown]
  - Product use in unapproved indication [Unknown]
  - Adverse drug reaction [Unknown]
  - Alopecia [Recovered/Resolved]
  - Off label use [Unknown]
